FAERS Safety Report 12080088 (Version 1)
Quarter: 2016Q1

REPORT INFORMATION
  Report Type: Spontaneous
  Country: US (occurrence: None)
  Receive Date: 20160212
  Receipt Date: 20160212
  Transmission Date: 20160526
  Serious: Yes (Life-Threatening)
  Sender: FDA-Public Use
  Company Number: None

PATIENT
  Age: 45 Year
  Sex: Male
  Weight: 81.65 kg

DRUGS (1)
  1. BENZONATATE 100MG [Suspect]
     Active Substance: BENZONATATE
     Indication: COUGH
     Dosage: 1 PILL PRN/AS NEEDED ORAL
     Route: 048
     Dates: start: 20160209, end: 20160209

REACTIONS (2)
  - Myocardial infarction [None]
  - Product physical issue [None]

NARRATIVE: CASE EVENT DATE: 20160209
